FAERS Safety Report 4503427-2 (Version None)
Quarter: 2004Q4

REPORT INFORMATION
  Report Type: 
  Country: None (occurrence: None)
  Receive Date: 20041112
  Receipt Date: 20041101
  Transmission Date: 20050328
  Serious: Yes (Hospitalization, Other)
  Sender: FDA-Public Use
  Company Number: 2004239908JP

PATIENT
  Age: 68 Year
  Sex: Female

DRUGS (10)
  1. CABERGOLINE [Suspect]
     Indication: PARKINSON'S DISEASE
     Dosage: 0.25 MG/DAY, ORAL
     Route: 048
     Dates: start: 20040906, end: 20040921
  2. PERMAX [Suspect]
     Indication: PARKINSON'S DISEASE
     Dosage: SEE IMAGE
     Route: 048
     Dates: start: 20040910, end: 20040921
  3. LUDIOMIL [Concomitant]
  4. MENESIT [Concomitant]
  5. SYMMETREL (AMANTADINE HYDROCHLORIDE0 [Concomitant]
  6. LUDOMIL (MAPROTILINE HYDROCHLORIDE) [Concomitant]
  7. LASIX [Concomitant]
  8. ALDACTONE [Concomitant]
  9. DEPAS (ETIZOLAM) [Concomitant]
  10. MAGNESIUM OXIDE [Concomitant]

REACTIONS (13)
  - CONVULSION [None]
  - DEPRESSED LEVEL OF CONSCIOUSNESS [None]
  - DRUG INEFFECTIVE [None]
  - DYSPHAGIA [None]
  - ENCEPHALITIS [None]
  - HALLUCINATION [None]
  - HEPATIC FUNCTION ABNORMAL [None]
  - IMMOBILE [None]
  - MENINGITIS [None]
  - NEUROLEPTIC MALIGNANT SYNDROME [None]
  - PNEUMONIA [None]
  - PO2 DECREASED [None]
  - REFUSAL OF TREATMENT BY PATIENT [None]
